FAERS Safety Report 8924398 (Version 1)
Quarter: 2012Q4

REPORT INFORMATION
  Report Type: Spontaneous
  Country: US (occurrence: None)
  Receive Date: 20121121
  Receipt Date: 20121121
  Transmission Date: 20130627
  Serious: Yes (Life-Threatening, Hospitalization)
  Sender: FDA-Public Use
  Company Number: None

PATIENT
  Age: 67 None
  Sex: Male
  Weight: 71.1 kg

DRUGS (1)
  1. VANCOMYCIN [Suspect]
     Dosage: 1500 MG ONCE IV
     Route: 042
     Dates: start: 20120703, end: 20120703

REACTIONS (10)
  - Infusion related reaction [None]
  - Rash [None]
  - Feeling hot [None]
  - Dyspnoea [None]
  - Unresponsive to stimuli [None]
  - Cyanosis [None]
  - Anaphylactic reaction [None]
  - Flushing [None]
  - Cough [None]
  - Wheezing [None]
